FAERS Safety Report 12140156 (Version 1)
Quarter: 2016Q1

REPORT INFORMATION
  Report Type: Spontaneous
  Country: JP (occurrence: JP)
  Receive Date: 20160303
  Receipt Date: 20160303
  Transmission Date: 20160526
  Serious: Yes (Hospitalization, Other)
  Sender: FDA-Public Use
  Company Number: PHJP2015JP024397

PATIENT
  Age: 57 Year
  Sex: Female
  Weight: 51 kg

DRUGS (13)
  1. NEORAL [Suspect]
     Active Substance: CYCLOSPORINE
     Dosage: 50 MG, QD
     Route: 048
     Dates: start: 20121228, end: 20130124
  2. RED CELLS CONCENTRATES-LEUKOCYTES REDUCED [Concomitant]
     Dosage: 2 IU, QD
     Route: 065
     Dates: start: 20140306, end: 20140421
  3. NEORAL [Suspect]
     Active Substance: CYCLOSPORINE
     Dosage: 150 MG, QD
     Route: 048
     Dates: start: 20101007, end: 20101021
  4. RED CELLS CONCENTRATES-LEUKOCYTES REDUCED [Concomitant]
     Dosage: 2 IU, QD
     Route: 065
     Dates: start: 20140213
  5. RED CELLS CONCENTRATES-LEUKOCYTES REDUCED [Concomitant]
     Dosage: 4 IU, QD
     Route: 065
     Dates: start: 20140303
  6. NEORAL [Suspect]
     Active Substance: CYCLOSPORINE
     Dosage: 150 MG, QD
     Route: 048
     Dates: start: 20130219, end: 20130311
  7. RED CELLS CONCENTRATES-LEUKOCYTES REDUCED [Concomitant]
     Indication: PRODUCT USED FOR UNKNOWN INDICATION
     Dosage: 2 IU, QD
     Route: 065
     Dates: start: 20101022, end: 20140131
  8. NEORAL [Suspect]
     Active Substance: CYCLOSPORINE
     Indication: MYELODYSPLASTIC SYNDROME
     Dosage: 200 MG, QD
     Route: 048
     Dates: start: 20100423, end: 20101006
  9. NEORAL [Suspect]
     Active Substance: CYCLOSPORINE
     Dosage: 100 MG, QD
     Route: 048
     Dates: start: 20130125, end: 20130218
  10. NEORAL [Suspect]
     Active Substance: CYCLOSPORINE
     Dosage: 200 MG, QD
     Route: 048
     Dates: start: 20130312, end: 20140421
  11. MAGLAX [Concomitant]
     Active Substance: MAGNESIUM OXIDE
     Indication: PROPHYLAXIS
     Dosage: 1.98 G, QD
     Route: 048
     Dates: start: 20130613, end: 20140421
  12. NEORAL [Suspect]
     Active Substance: CYCLOSPORINE
     Dosage: 200 MG, QD
     Route: 048
     Dates: start: 20101022, end: 20121217
  13. NEORAL [Suspect]
     Active Substance: CYCLOSPORINE
     Dosage: 100 MG, QD
     Route: 048
     Dates: start: 20121218, end: 20121227

REACTIONS (17)
  - Back pain [Unknown]
  - Anaemia [Unknown]
  - Red blood cell count decreased [Unknown]
  - Faeces discoloured [Unknown]
  - Blood pressure increased [Recovered/Resolved]
  - White blood cell count decreased [Unknown]
  - Blood lactate dehydrogenase increased [Recovered/Resolved]
  - Serum ferritin increased [Unknown]
  - Renal disorder [Recovering/Resolving]
  - Product use issue [Unknown]
  - Liver disorder [Not Recovered/Not Resolved]
  - Gastrointestinal haemorrhage [Recovered/Resolved]
  - Abdominal pain upper [Unknown]
  - Gastrointestinal haemorrhage [Recovered/Resolved]
  - Abdominal pain [Unknown]
  - Haematocrit decreased [Unknown]
  - Platelet count decreased [Unknown]

NARRATIVE: CASE EVENT DATE: 20100520
